FAERS Safety Report 25896069 (Version 1)
Quarter: 2025Q4

REPORT INFORMATION
  Report Type: Spontaneous
  Country: US (occurrence: None)
  Receive Date: 20251008
  Receipt Date: 20251008
  Transmission Date: 20260118
  Serious: Yes (Hospitalization)
  Sender: FDA-CTU
  Company Number: None

PATIENT
  Sex: Female

DRUGS (1)
  1. SKYRIZI [Suspect]
     Active Substance: RISANKIZUMAB-RZAA
     Indication: Crohn^s disease
     Dosage: OTHER STRENGTH : 360MG/2.4M;?OTHER FREQUENCY : EVERY 8 WEEKS;?
     Route: 058

REACTIONS (2)
  - Abdominal pain [None]
  - Crohn^s disease [None]
